FAERS Safety Report 20740654 (Version 10)
Quarter: 2025Q4

REPORT INFORMATION
  Report Type: Report from Study
  Country: US (occurrence: US)
  Receive Date: 20220422
  Receipt Date: 20251224
  Transmission Date: 20260117
  Serious: No
  Sender: PFIZER
  Company Number: US-PFIZER INC-202200411573

PATIENT
  Age: 84 Year
  Sex: Female

DRUGS (2)
  1. IBRANCE [Suspect]
     Active Substance: PALBOCICLIB
     Indication: Malignant nipple neoplasm female
     Dosage: 75 MG, CYCLIC, ONCE DAILY FOR 21 DAYS ND 7 DAYS PAUSE IN A 28 DAY CYCLE
     Route: 048
  2. IBRANCE [Suspect]
     Active Substance: PALBOCICLIB
     Dosage: 75 MG, CYCLIC, TAKE 1 CAPSULE EVERY DAY FOR 21 CONSECUTIVE DAYS, FOLLOWED BY 14 DAYS OFF
     Route: 048

REACTIONS (5)
  - Pain [Unknown]
  - Memory impairment [Unknown]
  - Neutrophil count decreased [Recovering/Resolving]
  - Off label use [Unknown]
  - Product use issue [Unknown]
